FAERS Safety Report 10946799 (Version 1)
Quarter: 2015Q1

REPORT INFORMATION
  Report Type: Spontaneous
  Country: US (occurrence: US)
  Receive Date: 20150323
  Receipt Date: 20150323
  Transmission Date: 20150721
  Serious: No
  Sender: FDA-Public Use
  Company Number: US-PFIZER INC-2015097064

PATIENT
  Age: 69 Year
  Sex: Female
  Weight: 87 kg

DRUGS (3)
  1. CHLORDIAZEPOXIDE/CLIDINIUM BROMIDE/DICYCLOVERINE HCL [Concomitant]
     Indication: DYSPEPSIA
     Dosage: 1 DF, 4X/DAY (AS NEEDED)
  2. VALSARTAN. [Concomitant]
     Active Substance: VALSARTAN
     Indication: HYPERTENSION
     Dosage: 80 MG, 1X/DAY
  3. LYRICA [Suspect]
     Active Substance: PREGABALIN
     Indication: PAIN
     Dosage: 75 MG, 1X/DAY
     Dates: start: 20150304

REACTIONS (1)
  - Drug ineffective [Not Recovered/Not Resolved]
